FAERS Safety Report 16825247 (Version 2)
Quarter: 2019Q3

REPORT INFORMATION
  Report Type: Spontaneous
  Country: US (occurrence: US)
  Receive Date: 20190919
  Receipt Date: 20190921
  Transmission Date: 20191005
  Serious: Yes (Hospitalization, Other)
  Sender: FDA-Public Use
  Company Number: US-JNJFOC-20190914697

PATIENT
  Age: 64 Year
  Sex: Male

DRUGS (1)
  1. PARACETAMOL [Suspect]
     Active Substance: ACETAMINOPHEN
     Indication: PRODUCT USED FOR UNKNOWN INDICATION
     Dosage: MASSIVE ACETAMINOPHEN INGESTION
     Route: 048

REACTIONS (6)
  - Respiratory failure [Recovered/Resolved]
  - Intestinal perforation [Unknown]
  - Gastrointestinal haemorrhage [Unknown]
  - Overdose [Unknown]
  - Shock [Recovered/Resolved]
  - Methaemoglobinaemia [Recovered/Resolved]
